FAERS Safety Report 17648415 (Version 1)
Quarter: 2020Q2

REPORT INFORMATION
  Report Type: Spontaneous
  Country: GB (occurrence: GB)
  Receive Date: 20200409
  Receipt Date: 20200409
  Transmission Date: 20200713
  Serious: Yes (Hospitalization, Other)
  Sender: FDA-Public Use
  Company Number: NVSC2020GB093462

PATIENT
  Age: 68 Year
  Sex: Male

DRUGS (4)
  1. OCTREOTIDE. [Suspect]
     Active Substance: OCTREOTIDE
     Indication: PANCREATIC NEUROENDOCRINE TUMOUR
     Dosage: UNK
     Route: 065
  2. LUTATHERA [Suspect]
     Active Substance: LUTETIUM OXODOTREOTIDE LU-177
     Indication: PANCREATIC NEUROENDOCRINE TUMOUR
     Dosage: 7.7 GBQ
     Route: 065
     Dates: start: 201905
  3. LUTATHERA [Suspect]
     Active Substance: LUTETIUM OXODOTREOTIDE LU-177
     Dosage: UNK
     Route: 065
     Dates: start: 201907
  4. LUTATHERA [Suspect]
     Active Substance: LUTETIUM OXODOTREOTIDE LU-177
     Dosage: UNK
     Route: 065
     Dates: start: 201909

REACTIONS (3)
  - Pancreatic neuroendocrine tumour [Unknown]
  - Malignant neoplasm progression [Unknown]
  - Hypoglycaemia [Recovered/Resolved]
